FAERS Safety Report 10066227 (Version 1)
Quarter: 2014Q2

REPORT INFORMATION
  Report Type: Spontaneous
  Country: DE (occurrence: DE)
  Receive Date: 20140408
  Receipt Date: 20140408
  Transmission Date: 20141212
  Serious: Yes (Hospitalization, Other)
  Sender: FDA-Public Use
  Company Number: DE-JNJFOC-20140401845

PATIENT
  Sex: Male

DRUGS (1)
  1. REMICADE [Suspect]
     Indication: ANKYLOSING SPONDYLITIS
     Dosage: DURATION 3 YEARS.
     Route: 042
     Dates: start: 201101, end: 201402

REACTIONS (2)
  - Cystitis [Recovered/Resolved]
  - Bladder transitional cell carcinoma [Recovered/Resolved]
